FAERS Safety Report 18276691 (Version 2)
Quarter: 2020Q3

REPORT INFORMATION
  Report Type: Other
  Country: US (occurrence: US)
  Receive Date: 20200917
  Receipt Date: 20200923
  Transmission Date: 20201103
  Serious: Yes (Death)
  Sender: FDA-Public Use
  Company Number: US-ROCHE-2586094

PATIENT
  Sex: Male

DRUGS (4)
  1. TECENTRIQ [Suspect]
     Active Substance: ATEZOLIZUMAB
     Indication: NAUSEA
  2. TECENTRIQ [Suspect]
     Active Substance: ATEZOLIZUMAB
     Indication: TONSIL CANCER
     Dosage: INFUSE 1200MG EVERY 21 DAY
     Route: 042
  3. TECENTRIQ [Suspect]
     Active Substance: ATEZOLIZUMAB
     Indication: AGRANULOCYTOSIS
  4. TECENTRIQ [Suspect]
     Active Substance: ATEZOLIZUMAB
     Indication: DEHYDRATION

REACTIONS (3)
  - Intentional product use issue [Unknown]
  - Death [Fatal]
  - Off label use [Unknown]
